FAERS Safety Report 10083880 (Version 2)
Quarter: 2014Q2

REPORT INFORMATION
  Report Type: Report from Study
  Country: AZ (occurrence: AZ)
  Receive Date: 20140417
  Receipt Date: 20140417
  Transmission Date: 20141212
  Serious: Yes (Other)
  Sender: FDA-Public Use
  Company Number: PHHY2013AZ150853

PATIENT
  Sex: Male

DRUGS (1)
  1. GLIVEC [Suspect]
     Indication: CHRONIC MYELOID LEUKAEMIA
     Dosage: 600 MG, ONCE/SINGLE
     Route: 048

REACTIONS (4)
  - Cholelithiasis [Unknown]
  - Cerebral ischaemia [Unknown]
  - Thrombocytosis [Unknown]
  - Leukocytosis [Unknown]
